FAERS Safety Report 23436559 (Version 1)
Quarter: 2024Q1

REPORT INFORMATION
  Report Type: Spontaneous
  Country: US (occurrence: None)
  Receive Date: 20240124
  Receipt Date: 20240124
  Transmission Date: 20240409
  Serious: No
  Sender: FDA-Public Use
  Company Number: US-ARIS GLOBAL-SUP202312-004758

PATIENT
  Sex: Female

DRUGS (2)
  1. QELBREE [Suspect]
     Active Substance: VILOXAZINE HYDROCHLORIDE
     Indication: Product used for unknown indication
     Dosage: NOT PROVIDED
  2. GUANFACINE [Concomitant]
     Active Substance: GUANFACINE
     Dosage: 1MG

REACTIONS (2)
  - Lymphadenopathy [Unknown]
  - Weight decreased [Unknown]
